FAERS Safety Report 25092494 (Version 2)
Quarter: 2025Q3

REPORT INFORMATION
  Report Type: Report from Study
  Country: US (occurrence: US)
  Receive Date: 20250319
  Receipt Date: 20250721
  Transmission Date: 20251021
  Serious: No
  Sender: SANOFI AVENTIS
  Company Number: US-SA-2025SA078220

PATIENT
  Age: 62 Year
  Sex: Female

DRUGS (9)
  1. DUPIXENT [Suspect]
     Active Substance: DUPILUMAB
     Indication: Dermatitis atopic
     Dosage: 300 MG, Q3W
     Route: 058
     Dates: start: 20230509
  2. TOPAMAX [Concomitant]
     Active Substance: TOPIRAMATE
  3. PROMETHAZINE [Concomitant]
     Active Substance: PROMETHAZINE HYDROCHLORIDE
  4. TRAZODONE [Concomitant]
     Active Substance: TRAZODONE HYDROCHLORIDE
  5. INFED [Concomitant]
     Active Substance: IRON DEXTRAN
  6. CYCLOBENZAPRINE [Concomitant]
     Active Substance: CYCLOBENZAPRINE
  7. PREGABALIN [Concomitant]
     Active Substance: PREGABALIN
  8. LISINOPRIL [Concomitant]
     Active Substance: LISINOPRIL
  9. AMLODIPINE [Concomitant]
     Active Substance: AMLODIPINE BESYLATE

REACTIONS (1)
  - Off label use [Unknown]

NARRATIVE: CASE EVENT DATE: 20230509
